FAERS Safety Report 10399877 (Version 1)
Quarter: 2014Q1

REPORT INFORMATION
  Report Type: Spontaneous
  Country: US (occurrence: None)
  Receive Date: 20130815
  Receipt Date: 20130815
  Transmission Date: 20141002
  Serious: Yes (Other)
  Sender: FDA-Public Use
  Company Number: ADR-2012-01765

PATIENT
  Sex: 0

DRUGS (1)
  1. BACLOFEN INTRATHECAL [Suspect]

REACTIONS (5)
  - Dystonia [None]
  - Pyrexia [None]
  - Back pain [None]
  - Tachycardia [None]
  - Drug withdrawal syndrome [None]
